FAERS Safety Report 10009794 (Version 2)
Quarter: 2014Q1

REPORT INFORMATION
  Report Type: Spontaneous
  Country: US (occurrence: US)
  Receive Date: 20140312
  Receipt Date: 20140312
  Transmission Date: 20141002
  Serious: No
  Sender: FDA-Public Use
  Company Number: US-INCYTE CORPORATION-2012IN002366

PATIENT
  Age: 77 Year
  Sex: Female
  Weight: 68.03 kg

DRUGS (5)
  1. JAKAFI [Suspect]
     Indication: MYELOPROLIFERATIVE DISORDER
     Dosage: 20 MG, QD
     Route: 048
     Dates: start: 20120514, end: 20121126
  2. JAKAFI [Suspect]
     Dosage: 10 MG, QD
     Route: 048
     Dates: start: 20121127
  3. JAKAFI [Suspect]
     Dosage: 20 UNK, QD
  4. HYDREA [Concomitant]
  5. IRON [Concomitant]

REACTIONS (3)
  - Rash [Recovered/Resolved]
  - Fatigue [Recovered/Resolved]
  - Pruritus [Recovered/Resolved]
